FAERS Safety Report 25218340 (Version 1)
Quarter: 2025Q2

REPORT INFORMATION
  Report Type: Spontaneous
  Country: DE (occurrence: DE)
  Receive Date: 20250421
  Receipt Date: 20250421
  Transmission Date: 20250716
  Serious: Yes (Hospitalization, Other)
  Sender: SANDOZ
  Company Number: DE-002147023-NVSC2021DE230079

PATIENT
  Age: 71 Year
  Sex: Female

DRUGS (5)
  1. FULVESTRANT [Suspect]
     Active Substance: FULVESTRANT
     Indication: Breast cancer metastatic
     Dosage: 500 MG, QD (EVERY TWO DAYS)
     Route: 030
     Dates: start: 20201207, end: 202104
  2. FULVESTRANT [Suspect]
     Active Substance: FULVESTRANT
     Route: 065
  3. CITRIC ACID MONOHYDRATE\POTASSIUM BICARBONATE\POTASSIUM CITRATE [Suspect]
     Active Substance: CITRIC ACID MONOHYDRATE\POTASSIUM BICARBONATE\POTASSIUM CITRATE
     Indication: Hypokalaemia
     Dosage: UNK UNK, QD
     Route: 048
     Dates: end: 20210804
  4. KISQALI [Suspect]
     Active Substance: RIBOCICLIB SUCCINATE
     Indication: Breast cancer metastatic
     Dosage: 400 MG, QD (REGIMEN 21 DAYS INTAKE, 7 DAYS PAUSE)
     Route: 048
     Dates: start: 20201207, end: 20210103
  5. KISQALI [Suspect]
     Active Substance: RIBOCICLIB SUCCINATE
     Dosage: 600 MG, QD (DAILY DOSE, REGIMEN 21 DAYS INTAKE, 7 DAYS PAUSE)
     Route: 048
     Dates: start: 20210104, end: 20210609

REACTIONS (3)
  - Diarrhoea [Recovered/Resolved]
  - Hypokalaemia [Not Recovered/Not Resolved]
  - Off label use [Unknown]

NARRATIVE: CASE EVENT DATE: 20210623
